FAERS Safety Report 5569555-8 (Version None)
Quarter: 2007Q4

REPORT INFORMATION
  Report Type: 
  Country: None (occurrence: None)
  Receive Date: 20071220
  Receipt Date: 20071026
  Transmission Date: 20080405
  Serious: Yes (Other)
  Sender: FDA-Public Use
  Company Number: US-PURDUE-USA_2007_0030238

PATIENT
  Sex: Male
  Weight: 91 kg

DRUGS (1)
  1. OXYCONTIN [Suspect]
     Indication: DRUG USE FOR UNKNOWN INDICATION
     Dosage: 20 MG, BID
     Dates: start: 20000420, end: 20061122

REACTIONS (12)
  - BACK PAIN [None]
  - BIOPSY LIVER [None]
  - BONE PAIN [None]
  - CHOLECYSTECTOMY [None]
  - GASTROINTESTINAL DISORDER [None]
  - HEADACHE [None]
  - HERNIA [None]
  - NERVOUS SYSTEM DISORDER [None]
  - PAIN IN EXTREMITY [None]
  - RENAL DISORDER [None]
  - RESPIRATORY DISORDER [None]
  - VISUAL DISTURBANCE [None]
